FAERS Safety Report 8087404-3 (Version None)
Quarter: 2012Q1

REPORT INFORMATION
  Report Type: 
  Country: None (occurrence: None)
  Receive Date: 20120128
  Receipt Date: 20110507
  Transmission Date: 20120608
  Serious: No
  Sender: FDA-Public Use
  Company Number: US-ABBOTT-11P-163-0724342-00

PATIENT

DRUGS (3)
  1. UNKNOWN TB MEDICATION [Concomitant]
     Indication: LATENT TUBERCULOSIS
  2. HUMIRA [Suspect]
     Indication: CROHN'S DISEASE
     Dates: start: 20110201
  3. LEVOTHROID [Concomitant]
     Indication: HYPOTHYROIDISM
     Dates: end: 20101201

REACTIONS (1)
  - ALOPECIA [None]
